FAERS Safety Report 6571054-1 (Version None)
Quarter: 2010Q1

REPORT INFORMATION
  Report Type: 
  Country: None (occurrence: None)
  Receive Date: 20100202
  Receipt Date: 20100202
  Transmission Date: 20100710
  Serious: Yes (Other)
  Sender: FDA-Public Use
  Company Number: None

PATIENT
  Sex: Male

DRUGS (2)
  1. PEG INTRON REDIPEN 120 MCG SCHERING-PLOUGH [Suspect]
     Indication: HEPATITIS C
     Dosage: 120 MCG WEEKLY SUBQ
     Route: 058
     Dates: start: 20100114, end: 20100128
  2. RIBASPHERE [Suspect]
     Dosage: 600 MG TWICE DAILY ORAL
     Route: 048

REACTIONS (1)
  - ADVERSE REACTION [None]
